FAERS Safety Report 22010650 (Version 1)
Quarter: 2023Q1

REPORT INFORMATION
  Report Type: Other
  Country: DE (occurrence: None)
  Receive Date: 20230220
  Receipt Date: 20230220
  Transmission Date: 20230418
  Serious: Yes (Hospitalization)
  Sender: FDA-Public Use
  Company Number: DE-ROCHE-3287369

PATIENT
  Age: 70 Year
  Sex: Male

DRUGS (9)
  1. RITUXIMAB [Suspect]
     Active Substance: RITUXIMAB
     Indication: Follicular lymphoma
     Route: 058
     Dates: start: 20201014, end: 20221012
  2. LEVOTHYROXINE [Concomitant]
     Active Substance: LEVOTHYROXINE
  3. CANDESARTAN [Concomitant]
     Active Substance: CANDESARTAN
  4. BISOPROLOL [Concomitant]
     Active Substance: BISOPROLOL
  5. SERTRALINE [Concomitant]
     Active Substance: SERTRALINE HYDROCHLORIDE
  6. THIAMINE [Concomitant]
     Active Substance: THIAMINE
  7. ZINC OROTATE [Concomitant]
     Active Substance: ZINC OROTATE
  8. CHOLECALCIFEROL [Concomitant]
     Active Substance: CHOLECALCIFEROL
  9. PANTOPRAZOLE SODIUM [Concomitant]
     Active Substance: PANTOPRAZOLE SODIUM

REACTIONS (6)
  - COVID-19 pneumonia [Recovering/Resolving]
  - SARS-CoV-2 antibody test negative [Unknown]
  - Diarrhoea [Unknown]
  - Asthenia [Unknown]
  - Cough [Unknown]
  - General physical health deterioration [Unknown]

NARRATIVE: CASE EVENT DATE: 20221205
